FAERS Safety Report 19479452 (Version 1)
Quarter: 2021Q2

REPORT INFORMATION
  Report Type: Spontaneous
  Country: GB (occurrence: GB)
  Receive Date: 20210630
  Receipt Date: 20210630
  Transmission Date: 20210717
  Serious: Yes (Disabling)
  Sender: FDA-Public Use
  Company Number: GB-PFIZER INC-2021658408

PATIENT
  Age: 70 Year
  Sex: Male
  Weight: 83 kg

DRUGS (1)
  1. ENCORAFENIB [Suspect]
     Active Substance: ENCORAFENIB
     Indication: ADENOCARCINOMA OF COLON
     Dosage: 300 MG, UNK
     Route: 048
     Dates: start: 20210506, end: 20210510

REACTIONS (1)
  - Productive cough [Unknown]

NARRATIVE: CASE EVENT DATE: 20210506
